FAERS Safety Report 9474038 (Version 1)
Quarter: 2013Q3

REPORT INFORMATION
  Report Type: Spontaneous
  Country: GB (occurrence: GB)
  Receive Date: 20130823
  Receipt Date: 20130823
  Transmission Date: 20140515
  Serious: Yes (Death)
  Sender: FDA-Public Use
  Company Number: GB-TEVA-427332ISR

PATIENT
  Age: 15 Year
  Sex: Male

DRUGS (4)
  1. DIAZEPAM [Suspect]
     Indication: DRUG ABUSE
     Dosage: DOSING DETAILS UNKNOWN
     Route: 065
     Dates: start: 2011, end: 201106
  2. BUPRENORPHINE [Suspect]
     Indication: DRUG ABUSE
     Dosage: DOSING DETAILS UNKNOWN
     Route: 065
     Dates: start: 2011, end: 201106
  3. CODEINE [Suspect]
     Indication: DRUG ABUSE
     Dosage: DOSING DETAILS UNKNOWN
     Route: 065
     Dates: start: 2011, end: 201106
  4. ANTIDEPRESSANTS NOS [Suspect]
     Indication: DRUG ABUSE
     Dosage: DOSING DETAILS UNKNOWN
     Route: 065
     Dates: start: 2011, end: 201106

REACTIONS (2)
  - Toxicity to various agents [Fatal]
  - Drug abuse [Fatal]
